FAERS Safety Report 24709923 (Version 1)
Quarter: 2024Q4

REPORT INFORMATION
  Report Type: Spontaneous
  Country: IT (occurrence: IT)
  Receive Date: 20241209
  Receipt Date: 20241209
  Transmission Date: 20250115
  Serious: Yes (Hospitalization)
  Sender: CHEPLAPHARM
  Company Number: None

PATIENT
  Age: 65 Year
  Sex: Female

DRUGS (6)
  1. OLANZAPINE [Suspect]
     Active Substance: OLANZAPINE
     Indication: Suicide attempt
     Route: 048
     Dates: start: 20241122, end: 20241122
  2. OLANZAPINE [Suspect]
     Active Substance: OLANZAPINE
     Indication: Intentional overdose
     Route: 048
     Dates: start: 20241122, end: 20241122
  3. OLMESARTAN MEDOXOMIL [Suspect]
     Active Substance: OLMESARTAN MEDOXOMIL
     Indication: Intentional overdose
     Route: 048
     Dates: start: 20241122, end: 20241122
  4. OLMESARTAN MEDOXOMIL [Suspect]
     Active Substance: OLMESARTAN MEDOXOMIL
     Indication: Suicide attempt
     Route: 048
     Dates: start: 20241122, end: 20241122
  5. ZOLPIDEM [Suspect]
     Active Substance: ZOLPIDEM TARTRATE
     Indication: Intentional overdose
     Route: 048
     Dates: start: 20241122, end: 20241122
  6. ZOLPIDEM [Suspect]
     Active Substance: ZOLPIDEM TARTRATE
     Indication: Suicide attempt
     Route: 048
     Dates: start: 20241122, end: 20241122

REACTIONS (3)
  - Somnolence [Not Recovered/Not Resolved]
  - Intentional overdose [Not Recovered/Not Resolved]
  - Suicide attempt [Unknown]

NARRATIVE: CASE EVENT DATE: 20241122
